FAERS Safety Report 14658696 (Version 6)
Quarter: 2019Q2

REPORT INFORMATION
  Report Type: Spontaneous
  Country: US (occurrence: US)
  Receive Date: 20180320
  Receipt Date: 20190617
  Transmission Date: 20190711
  Serious: Yes (Other)
  Sender: FDA-Public Use
  Company Number: US-PFIZER INC-2018098164

PATIENT
  Age: 78 Year
  Sex: Female
  Weight: 68 kg

DRUGS (7)
  1. GENOTROPIN MQ [Suspect]
     Active Substance: SOMATROPIN
     Dosage: UNK UNK, DAILY (0.8 DAILY)
     Dates: start: 2005
  2. PREMARIN [Concomitant]
     Active Substance: ESTROGENS, CONJUGATED
     Indication: HYSTERECTOMY
     Dosage: 0.6 MG, 1X/DAY
     Route: 048
     Dates: start: 1973
  3. GENOTROPIN MQ [Suspect]
     Active Substance: SOMATROPIN
     Dosage: 0.6 MG, DAILY
  4. SYNTHROID [Concomitant]
     Active Substance: LEVOTHYROXINE SODIUM
     Indication: THYROID DISORDER
     Dosage: 50 UG, 1X/DAY
     Route: 048
  5. GENOTROPIN MQ [Suspect]
     Active Substance: SOMATROPIN
     Indication: HORMONE LEVEL ABNORMAL
     Dosage: 0.6 MG, DAILY
     Route: 058
     Dates: start: 2004
  6. PREMARIN [Concomitant]
     Active Substance: ESTROGENS, CONJUGATED
     Dosage: UNK, DAILY (0.6 DAILY)
     Route: 048
     Dates: start: 1973
  7. SYNTHROID [Concomitant]
     Active Substance: LEVOTHYROXINE SODIUM
     Dosage: UNK, DAILY (50 DAILY)
     Dates: start: 2006

REACTIONS (7)
  - Joint injury [Not Recovered/Not Resolved]
  - Road traffic accident [Not Recovered/Not Resolved]
  - Product prescribing error [Unknown]
  - Product dose omission [Unknown]
  - Irritability [Unknown]
  - Limb injury [Not Recovered/Not Resolved]
  - Back pain [Not Recovered/Not Resolved]

NARRATIVE: CASE EVENT DATE: 201802
